FAERS Safety Report 7249533-3 (Version None)
Quarter: 2011Q1

REPORT INFORMATION
  Report Type: 
  Country: None (occurrence: None)
  Receive Date: 20110128
  Receipt Date: 20101207
  Transmission Date: 20110831
  Serious: Yes (Other)
  Sender: FDA-Public Use
  Company Number: US-BAYER-US-2006-015351

PATIENT
  Sex: Female
  Weight: 90.909 kg

DRUGS (5)
  1. ESTRADIOL W/NORETHISTERONE ACETATE [Suspect]
     Indication: MENOPAUSAL SYMPTOMS
     Dosage: 50/140
     Dates: end: 20040809
  2. MEDROXYPROGESTERONE ACETATE [Suspect]
     Indication: MENOPAUSAL SYMPTOMS
     Dosage: UNK, UNK
     Dates: start: 19950101, end: 19970101
  3. ESTRADIOL [Suspect]
     Indication: MENOPAUSAL SYMPTOMS
     Dosage: .1 MG, UNK
     Route: 062
     Dates: start: 19870101, end: 20020101
  4. MEDROXYPROGESTERONE [Suspect]
     Indication: MENOPAUSAL SYMPTOMS
     Dosage: UNK, UNK
     Dates: start: 19971215, end: 20020208
  5. CLIMARA [Suspect]
     Indication: MENOPAUSAL SYMPTOMS
     Dosage: UNK, UNK
     Route: 062
     Dates: start: 19950901

REACTIONS (3)
  - BREAST CANCER FEMALE [None]
  - OSTEOARTHRITIS [None]
  - ARTHRALGIA [None]
